FAERS Safety Report 9119831 (Version 1)
Quarter: 2013Q1

REPORT INFORMATION
  Report Type: Spontaneous
  Country: US (occurrence: US)
  Receive Date: 20130226
  Receipt Date: 20130226
  Transmission Date: 20140127
  Serious: Yes (Other)
  Sender: FDA-Public Use
  Company Number: US-ELI_LILLY_AND_COMPANY-US201302007602

PATIENT
  Age: 60 Year
  Sex: Female
  Weight: 65.76 kg

DRUGS (1)
  1. HUMALOG LISPRO [Suspect]
     Route: 058

REACTIONS (6)
  - Blood glucose increased [Unknown]
  - Blood ketone body [Unknown]
  - Vomiting [Unknown]
  - Dizziness [Unknown]
  - Hyperhidrosis [Unknown]
  - Incorrect dose administered [Unknown]
